FAERS Safety Report 4518524-5 (Version None)
Quarter: 2004Q4

REPORT INFORMATION
  Report Type: 
  Country: None (occurrence: None)
  Receive Date: 20041201
  Receipt Date: 20041116
  Transmission Date: 20050328
  Serious: Yes (Death, Other)
  Sender: FDA-Public Use
  Company Number: A-US2004-07506

PATIENT
  Age: 54 Year
  Sex: Female

DRUGS (3)
  1. TRACLEER [Suspect]
     Indication: EISENMENGER'S SYNDROME
     Dosage: SEE IMAGE
     Route: 048
     Dates: start: 20040804, end: 20040824
  2. TRACLEER [Suspect]
     Indication: EISENMENGER'S SYNDROME
     Dosage: SEE IMAGE
     Route: 048
     Dates: start: 20040825
  3. DIURETICS [Concomitant]

REACTIONS (3)
  - CONDITION AGGRAVATED [None]
  - OEDEMA PERIPHERAL [None]
  - RIGHT VENTRICULAR FAILURE [None]
